FAERS Safety Report 5697208-4 (Version None)
Quarter: 2008Q2

REPORT INFORMATION
  Report Type: 
  Country: None (occurrence: None)
  Receive Date: 20080408
  Receipt Date: 20070702
  Transmission Date: 20081010
  Serious: No
  Sender: FDA-Public Use
  Company Number: US-BAYER-US-2007-024839

PATIENT
  Age: 19 Year
  Sex: Female
  Weight: 67 kg

DRUGS (2)
  1. YASMIN [Suspect]
     Indication: POLYCYSTIC OVARIES
     Route: 048
     Dates: start: 20060301
  2. ANTI-ASTHMATICS [Concomitant]
     Indication: ASTHMA
     Route: 048

REACTIONS (1)
  - PAIN IN EXTREMITY [None]
